FAERS Safety Report 9113188 (Version 1)
Quarter: 2013Q1

REPORT INFORMATION
  Report Type: Spontaneous
  Country: US (occurrence: US)
  Receive Date: 20130211
  Receipt Date: 20130211
  Transmission Date: 20140127
  Serious: Yes (Death, Other)
  Sender: FDA-Public Use
  Company Number: US-PFIZER INC-2013055458

PATIENT
  Age: 52 Year
  Sex: Male
  Weight: 116 kg

DRUGS (12)
  1. TIKOSYN [Suspect]
     Dosage: UNK
  2. CRESTOR [Suspect]
     Indication: BLOOD CHOLESTEROL INCREASED
     Dosage: 10 MG, 1X/DAY
     Dates: start: 201201
  3. LOVASTATIN [Suspect]
     Indication: BLOOD CHOLESTEROL INCREASED
     Dosage: 10 MG, 1X/DAY
     Dates: start: 2004, end: 201201
  4. PLAVIX [Concomitant]
     Dosage: 75 MG, UNK
  5. COREG [Concomitant]
     Dosage: UNK
  6. TENEX [Concomitant]
     Dosage: UNK
  7. LEVOTHYROXINE [Concomitant]
     Dosage: UNK
  8. COUMADIN [Concomitant]
     Dosage: UNK
  9. LISINOPRIL [Concomitant]
     Dosage: UNK
  10. ISOSORBIDE MONONITRATE [Concomitant]
     Dosage: UNK
  11. PROZAC [Concomitant]
     Dosage: UNK
  12. LASIX [Concomitant]
     Dosage: UNK

REACTIONS (7)
  - Death [Fatal]
  - Haematological malignancy [Unknown]
  - Chronic obstructive pulmonary disease [Unknown]
  - Cardiac disorder [Unknown]
  - Thyroid disorder [Unknown]
  - Blood pressure abnormal [Unknown]
  - Depression [Unknown]
